FAERS Safety Report 25105272 (Version 3)
Quarter: 2025Q3

REPORT INFORMATION
  Report Type: Report from Study
  Country: CN (occurrence: CN)
  Receive Date: 20250321
  Receipt Date: 20250810
  Transmission Date: 20251021
  Serious: Yes (Hospitalization, Other)
  Sender: ALEXION PHARMACEUTICALS
  Company Number: CN-ASTRAZENECA-202503GLO012205CN

PATIENT
  Age: 10 Year
  Sex: Male

DRUGS (15)
  1. SELUMETINIB [Suspect]
     Active Substance: SELUMETINIB
     Dosage: 30 MILLIGRAM, BID
     Route: 065
     Dates: start: 20240815, end: 20240921
  2. SELUMETINIB [Suspect]
     Active Substance: SELUMETINIB
     Dosage: 20 MILLIGRAM, QD
     Route: 065
     Dates: start: 20240922, end: 20241018
  3. SELUMETINIB [Suspect]
     Active Substance: SELUMETINIB
     Route: 065
     Dates: start: 20241019, end: 20241019
  4. SELUMETINIB [Suspect]
     Active Substance: SELUMETINIB
     Dosage: 10 MG AND 20 MG, BID
     Route: 065
     Dates: start: 20241103, end: 20241216
  5. SELUMETINIB [Suspect]
     Active Substance: SELUMETINIB
     Dosage: 10 MG AND 20 MG, BID
     Route: 065
     Dates: start: 20241221
  6. SELUMETINIB [Suspect]
     Active Substance: SELUMETINIB
     Dosage: 20 MILLIGRAM, QD
     Route: 065
     Dates: start: 20241114, end: 20241216
  7. SELUMETINIB [Suspect]
     Active Substance: SELUMETINIB
     Dosage: 20 MILLIGRAM, QD
     Route: 065
     Dates: start: 20241221, end: 20250114
  8. SELUMETINIB [Suspect]
     Active Substance: SELUMETINIB
     Dosage: 20 MILLIGRAM, QD
     Route: 065
     Dates: start: 20250116
  9. AMBROXOL HYDROCHLORIDE [Concomitant]
     Active Substance: AMBROXOL HYDROCHLORIDE
     Dosage: UNK, QD
     Dates: start: 20240815, end: 20240815
  10. TACROLIMUS [Concomitant]
     Active Substance: TACROLIMUS
     Route: 065
     Dates: start: 20240815, end: 20240825
  11. UREA [Concomitant]
     Active Substance: UREA
     Route: 065
  12. LIDOCAINE HYDROCHLORIDE [Concomitant]
     Active Substance: LIDOCAINE HYDROCHLORIDE
     Indication: Surgery
     Dosage: UNK, QD
     Route: 065
     Dates: start: 20240815, end: 20240815
  13. Compound lactic acid [Concomitant]
     Route: 065
  14. Compound glycyrrhizin [Concomitant]
     Indication: Prophylaxis
     Dosage: UNK, TID
     Route: 065
     Dates: start: 20240923, end: 20241018
  15. VITAMIN B2 [Concomitant]
     Active Substance: RIBOFLAVIN
     Dosage: UNK, BID
     Route: 065
     Dates: start: 20241110, end: 20241115

REACTIONS (1)
  - Anal abscess [Recovered/Resolved]

NARRATIVE: CASE EVENT DATE: 20250302
